FAERS Safety Report 7129051-3 (Version None)
Quarter: 2010Q4

REPORT INFORMATION
  Report Type: 
  Country: None (occurrence: None)
  Receive Date: 20101130
  Receipt Date: 20101119
  Transmission Date: 20110411
  Serious: Yes (Hospitalization, Other)
  Sender: FDA-Public Use
  Company Number: US-AMGEN-US261854

PATIENT

DRUGS (4)
  1. PROCRIT [Suspect]
     Indication: ANAEMIA
     Dosage: 40000 IU, QWK
     Route: 058
     Dates: start: 20060601, end: 20090301
  2. RIBAVIRIN [Concomitant]
     Dosage: UNK UNK, UNK
     Dates: end: 20061101
  3. INTERFERON [Concomitant]
     Dosage: UNK UNK, UNK
     Dates: end: 20061101
  4. CYANOCOBALAMIN [Concomitant]

REACTIONS (4)
  - ANTI-ERYTHROPOIETIN ANTIBODY POSITIVE [None]
  - APLASIA PURE RED CELL [None]
  - NEUTRALISING ANTIBODIES POSITIVE [None]
  - VARICES OESOPHAGEAL [None]
